FAERS Safety Report 20019077 (Version 5)
Quarter: 2022Q3

REPORT INFORMATION
  Report Type: Spontaneous
  Country: ES (occurrence: ES)
  Receive Date: 20211101
  Receipt Date: 20220706
  Transmission Date: 20221027
  Serious: Yes (Death, Hospitalization, Other)
  Sender: FDA-Public Use
  Company Number: ES-GRUNENTHAL-2021-267886

PATIENT
  Age: 74 Year
  Sex: Female

DRUGS (18)
  1. FENTANYL [Interacting]
     Active Substance: FENTANYL
     Indication: Breakthrough pain
     Dosage: 200 MICROGRAM, PRN, (AS NEEDED,  2 DAILY RESCUES
     Route: 002
     Dates: start: 20210216
  2. FENTANYL [Interacting]
     Active Substance: FENTANYL
     Indication: Sciatica
  3. SERTRALINE [Interacting]
     Active Substance: SERTRALINE HYDROCHLORIDE
     Indication: Adjustment disorder with depressed mood
     Dosage: 50 MILLIGRAM, QD (50MG EVERY 24 H )
     Route: 065
     Dates: start: 20210215, end: 20210301
  4. SERTRALINE [Interacting]
     Active Substance: SERTRALINE HYDROCHLORIDE
     Dosage: 50 MILLIGRAM, QD (50MG EVERY 24 H )
     Route: 065
     Dates: start: 2021
  5. ACETAMINOPHEN [Suspect]
     Active Substance: ACETAMINOPHEN
     Indication: Sciatica
     Dosage: 1 GRAM, Q8H
     Route: 065
     Dates: start: 2020
  6. TAPENTADOL [Interacting]
     Active Substance: TAPENTADOL
     Indication: Sciatica
     Dosage: UNK
     Route: 065
  7. TAPENTADOL [Interacting]
     Active Substance: TAPENTADOL
     Dosage: 50 MILLIGRAM, BID (50 MG EVERY 12 H )
     Route: 065
     Dates: start: 20201222
  8. TAPENTADOL [Interacting]
     Active Substance: TAPENTADOL
     Dosage: 200 MILLIGRAM, BID (50 MG EVERY 12 H )
     Route: 065
     Dates: start: 2021
  9. PALEXIA [Interacting]
     Active Substance: TAPENTADOL HYDROCHLORIDE
     Indication: Pain
     Dosage: 100 MILLIGRAM, QD (50 MILLIGRAM, 2/DAY)
     Route: 048
     Dates: start: 20201222, end: 20210216
  10. PALEXIA [Interacting]
     Active Substance: TAPENTADOL HYDROCHLORIDE
     Indication: Sciatica
     Dosage: 400 MILLIGRAM, QD (200 MILLIGRAM, 2/DAY)
     Route: 048
     Dates: start: 20210216, end: 202103
  11. METAMIZOLE [Suspect]
     Active Substance: METAMIZOLE
     Indication: Pain
     Dosage: 1725 MILLIGRAM, QD (575 MILLIGRAM, 3/DAY)
     Route: 065
     Dates: start: 20201011, end: 20201222
  12. METAMIZOLE [Suspect]
     Active Substance: METAMIZOLE
     Indication: Sciatica
     Dosage: 575 MILLIGRAM, Q8H
     Route: 065
     Dates: start: 2020
  13. OXYCODONE [Concomitant]
     Active Substance: OXYCODONE
     Indication: Sciatica
     Dosage: UNK
     Route: 058
  14. ACETAMINOPHEN [Concomitant]
     Active Substance: ACETAMINOPHEN
     Indication: Pain
     Dosage: 3 GRAM, QD (1 GRAM, 3/DAY)
     Route: 065
     Dates: start: 20201011, end: 20201222
  15. GABAPENTIN [Concomitant]
     Active Substance: GABAPENTIN
     Indication: Pain
     Dosage: 300 MILLIGRAM, QD (300 MG EVERY 24 H )
     Route: 065
     Dates: start: 20210216
  16. GABAPENTIN [Concomitant]
     Active Substance: GABAPENTIN
     Indication: Sciatica
     Dosage: 300 MILLIGRAM, QD (300 MG EVERY 24 H )
     Route: 065
     Dates: start: 2021
  17. OCTREOTIDE [Concomitant]
     Active Substance: OCTREOTIDE
     Indication: Carcinoid syndrome
     Dosage: UNK
     Route: 065
  18. FENTANYL [Concomitant]
     Active Substance: FENTANYL
     Indication: Sciatica
     Dosage: 200 MICROGRAM (200 MCG, 2 DAILY RESCUES )
     Route: 002
     Dates: start: 2021

REACTIONS (11)
  - Neuroendocrine carcinoma [Fatal]
  - Serotonin syndrome [Recovering/Resolving]
  - Hyperresponsive to stimuli [Recovering/Resolving]
  - Pelvic pain [Unknown]
  - Flushing [Unknown]
  - Vomiting [Unknown]
  - Restlessness [Unknown]
  - Drug interaction [Unknown]
  - Asthenia [Unknown]
  - Decreased appetite [Unknown]
  - Drug ineffective [Unknown]

NARRATIVE: CASE EVENT DATE: 20200101
